FAERS Safety Report 11065774 (Version 1)
Quarter: 2015Q2

REPORT INFORMATION
  Report Type: Spontaneous
  Country: US (occurrence: None)
  Receive Date: 20150423
  Receipt Date: 20150423
  Transmission Date: 20150821
  Serious: Yes (Life-Threatening, Hospitalization, Other)
  Sender: FDA-Public Use
  Company Number: ADR-2015-00764

PATIENT
  Age: 39 Year
  Sex: Female

DRUGS (2)
  1. LIORESAL [Suspect]
     Active Substance: BACLOFEN
     Indication: MUSCLE SPASTICITY
  2. PRIALT [Suspect]
     Active Substance: ZICONOTIDE ACETATE

REACTIONS (3)
  - Spinal cord abscess [None]
  - Wound [None]
  - Malaise [None]
